FAERS Safety Report 10014366 (Version 1)
Quarter: 2014Q1

REPORT INFORMATION
  Report Type: Spontaneous
  Country: US (occurrence: US)
  Receive Date: 20140317
  Receipt Date: 20140317
  Transmission Date: 20141002
  Serious: No
  Sender: FDA-Public Use
  Company Number: US-BIOGENIDEC-2014BI022134

PATIENT
  Age: 68 Year
  Sex: Female

DRUGS (21)
  1. TECFIDERA [Suspect]
     Indication: MULTIPLE SCLEROSIS
     Route: 048
     Dates: start: 20131001, end: 20131214
  2. TECFIDERA [Suspect]
     Indication: MULTIPLE SCLEROSIS
     Route: 048
     Dates: start: 20140101
  3. EFFEXOR [Concomitant]
  4. TAMOXIFEN [Concomitant]
  5. SULFONAMIDE [Concomitant]
  6. CLONAZEPAM [Concomitant]
  7. BACLOFEN [Concomitant]
  8. FLUTICAFISONE [Concomitant]
  9. CLARITIN D [Concomitant]
  10. LISINOPRIL [Concomitant]
  11. CALCIUM [Concomitant]
  12. D3 [Concomitant]
  13. ASPIRIN [Concomitant]
  14. POTASSIUM CITRATE [Concomitant]
  15. FLORASTOR [Concomitant]
  16. ZOCOR [Concomitant]
  17. ATENOLOL [Concomitant]
  18. DITROPAN XL [Concomitant]
  19. VITAMIN B 12 [Concomitant]
  20. IRON [Concomitant]
  21. SULFA [Concomitant]
     Dates: start: 20131213, end: 20131214

REACTIONS (8)
  - Urinary tract infection [Unknown]
  - Dyspnoea [Unknown]
  - Middle insomnia [Unknown]
  - Flushing [Unknown]
  - Rash [Recovered/Resolved]
  - Hot flush [Unknown]
  - Erythema [Unknown]
  - Feeling hot [Unknown]
